FAERS Safety Report 11442008 (Version 1)
Quarter: 2015Q3

REPORT INFORMATION
  Report Type: Spontaneous
  Country: US (occurrence: US)
  Receive Date: 20150901
  Receipt Date: 20150901
  Transmission Date: 20151125
  Serious: Yes (Other)
  Sender: FDA-Public Use
  Company Number: US-BAYER-2015-410147

PATIENT
  Age: 6 Year
  Sex: Female
  Weight: 14.06 kg

DRUGS (1)
  1. MIRALAX [Suspect]
     Active Substance: POLYETHYLENE GLYCOL 3350
     Indication: CONSTIPATION
     Dosage: 0.5 TEASPOON, BID FOR FEW YEARS
     Route: 050

REACTIONS (3)
  - Drug administered to patient of inappropriate age [None]
  - Underdose [Unknown]
  - Drug dependence [Unknown]
